FAERS Safety Report 9126424 (Version 1)
Quarter: 2013Q1

REPORT INFORMATION
  Report Type: Spontaneous
  Country: US (occurrence: US)
  Receive Date: 20130117
  Receipt Date: 20130117
  Transmission Date: 20140127
  Serious: Yes (Other)
  Sender: FDA-Public Use
  Company Number: US-GLAXOSMITHKLINE-B0860101A

PATIENT
  Age: 66 Year
  Sex: Male

DRUGS (2)
  1. MELPHALAN [Suspect]
     Indication: ACRAL LENTIGINOUS MELANOMA
     Route: 042
     Dates: start: 200912
  2. DACTINOMYCIN [Suspect]
     Indication: ACRAL LENTIGINOUS MELANOMA
     Route: 042
     Dates: start: 200912

REACTIONS (3)
  - Lymphoedema [Unknown]
  - Toxicity to various agents [Unknown]
  - Blister [Unknown]
